FAERS Safety Report 13899049 (Version 3)
Quarter: 2017Q3

REPORT INFORMATION
  Report Type: Report from Study
  Country: IT (occurrence: IT)
  Receive Date: 20170824
  Receipt Date: 20170928
  Transmission Date: 20171127
  Serious: Yes (Hospitalization)
  Sender: FDA-Public Use
  Company Number: IT-FERRINGPH-2017FE04066

PATIENT

DRUGS (9)
  1. DEGARELIX [Suspect]
     Active Substance: DEGARELIX
     Indication: NEOPLASM PROSTATE
     Dosage: 240 MG, 1 TIME DAILY
     Route: 058
     Dates: start: 20170801, end: 20170801
  2. METFORMIN [Concomitant]
     Active Substance: METFORMIN HYDROCHLORIDE
  3. ESKIM [Concomitant]
     Active Substance: OMEGA-3 FATTY ACIDS
  4. ALLOPURINOL. [Concomitant]
     Active Substance: ALLOPURINOL
  5. METOPROLOL. [Concomitant]
     Active Substance: METOPROLOL
  6. GLICLAZIDE [Concomitant]
     Active Substance: GLICLAZIDE
  7. FUROSEMIDE. [Concomitant]
     Active Substance: FUROSEMIDE
  8. EZETIMIBE/SIMVASTATIN [Concomitant]
     Active Substance: EZETIMIBE\SIMVASTATIN
  9. RAMIPRIL. [Concomitant]
     Active Substance: RAMIPRIL

REACTIONS (2)
  - Abdominal pain [Recovered/Resolved]
  - Ileus paralytic [Recovered/Resolved]

NARRATIVE: CASE EVENT DATE: 20170801
